FAERS Safety Report 8091108-0 (Version None)
Quarter: 2012Q1

REPORT INFORMATION
  Report Type: 
  Country: None (occurrence: None)
  Receive Date: 20120129
  Receipt Date: 20111025
  Transmission Date: 20120608
  Serious: No
  Sender: FDA-Public Use
  Company Number: US-ABBOTT-11P-163-0868078-00

PATIENT
  Age: 59 Year
  Sex: Female

DRUGS (16)
  1. HUMIRA [Suspect]
     Indication: RHEUMATOID ARTHRITIS
     Dates: start: 20111024
  2. VISTARIL [Concomitant]
     Indication: ANXIETY
  3. BYSTOLIC [Concomitant]
     Indication: HYPERTENSION
  4. AGGRENOX [Concomitant]
     Indication: ANTICOAGULANT THERAPY
  5. SPIRIVA [Concomitant]
     Indication: CHRONIC OBSTRUCTIVE PULMONARY DISEASE
     Dosage: INHALER
  6. DIOVAN HCT [Concomitant]
     Indication: BLOOD PRESSURE
     Dosage: 160/25, DAILY
  7. ANTIVERT [Concomitant]
     Indication: NAUSEA
  8. POTASSIUM [Concomitant]
     Indication: PRODUCT USED FOR UNKNOWN INDICATION
  9. LASIX [Concomitant]
     Indication: FLUID RETENTION
  10. ADVAIR DISKUS 100/50 [Concomitant]
     Indication: CHRONIC OBSTRUCTIVE PULMONARY DISEASE
  11. CELEBREX [Concomitant]
     Indication: ARTHRITIS
  12. NEXIUM [Concomitant]
     Indication: GASTROOESOPHAGEAL REFLUX DISEASE
  13. NEURONTIN [Concomitant]
     Indication: PAIN
  14. ANTIVERT [Concomitant]
     Indication: VOMITING
  15. ANTIVERT [Concomitant]
     Indication: DIZZINESS
  16. CALCIUM [Concomitant]
     Indication: PRODUCT USED FOR UNKNOWN INDICATION

REACTIONS (1)
  - MUSCLE SPASMS [None]
